FAERS Safety Report 8950953 (Version 1)
Quarter: 2012Q4

REPORT INFORMATION
  Report Type: Spontaneous
  Country: US (occurrence: None)
  Receive Date: 20121130
  Receipt Date: 20121130
  Transmission Date: 20130627
  Serious: No
  Sender: FDA-Public Use
  Company Number: None

PATIENT
  Sex: Male

DRUGS (2)
  1. CEFDINIR [Suspect]
     Dosage: 250 mg / 5 ml
  2. CEFDINIR [Suspect]

REACTIONS (1)
  - Overdose [None]
